FAERS Safety Report 16202314 (Version 2)
Quarter: 2019Q2

REPORT INFORMATION
  Report Type: Spontaneous
  Country: US (occurrence: US)
  Receive Date: 20190416
  Receipt Date: 20190527
  Transmission Date: 20190711
  Serious: Yes (Other)
  Sender: FDA-Public Use
  Company Number: US-TORRENT-00007980

PATIENT
  Sex: Female

DRUGS (1)
  1. LOSARTAN. [Suspect]
     Active Substance: LOSARTAN
     Indication: PRODUCT USED FOR UNKNOWN INDICATION
     Dosage: STOPPED TAKING MEDICATION 2 MONTHS AGO
     Dates: end: 201902

REACTIONS (6)
  - Abdominal pain upper [Recovered/Resolved]
  - Nausea [Unknown]
  - Weight decreased [Unknown]
  - Vomiting [Unknown]
  - Malaise [Unknown]
  - Dizziness [Unknown]
